FAERS Safety Report 23462306 (Version 1)
Quarter: 2024Q1

REPORT INFORMATION
  Report Type: Spontaneous
  Country: PL (occurrence: PL)
  Receive Date: 20240131
  Receipt Date: 20240131
  Transmission Date: 20240410
  Serious: Yes (Hospitalization, Other)
  Sender: FDA-Public Use
  Company Number: PL-002147023-PHHY2019PL046583

PATIENT
  Age: 65 Year
  Sex: Female

DRUGS (42)
  1. ALPRAZOLAM [Suspect]
     Active Substance: ALPRAZOLAM
     Indication: Anxiety disorder
     Dosage: UNK
     Route: 065
  2. ALPRAZOLAM [Suspect]
     Active Substance: ALPRAZOLAM
     Indication: Anxiety
  3. ALPRAZOLAM [Suspect]
     Active Substance: ALPRAZOLAM
     Indication: Fear
  4. CLOBETASOL PROPIONATE [Suspect]
     Active Substance: CLOBETASOL PROPIONATE
     Indication: Somatic symptom disorder
     Dosage: UNK
     Route: 061
  5. CLOBETASOL PROPIONATE [Suspect]
     Active Substance: CLOBETASOL PROPIONATE
     Indication: Somatic dysfunction
  6. CLONAZEPAM [Suspect]
     Active Substance: CLONAZEPAM
     Indication: Fear
     Dosage: UNK
     Route: 065
  7. CLONAZEPAM [Suspect]
     Active Substance: CLONAZEPAM
     Indication: Anxiety
  8. CLONAZEPAM [Suspect]
     Active Substance: CLONAZEPAM
     Indication: Anxiety disorder
  9. ESOMEPRAZOLE MAGNESIUM [Suspect]
     Active Substance: ESOMEPRAZOLE\ESOMEPRAZOLE MAGNESIUM\ESOMEPRAZOLE MAGNESIUM DIHYDRATE
     Indication: Somatic symptom disorder
     Dosage: UNK
     Route: 065
  10. ESOMEPRAZOLE MAGNESIUM [Suspect]
     Active Substance: ESOMEPRAZOLE\ESOMEPRAZOLE MAGNESIUM\ESOMEPRAZOLE MAGNESIUM DIHYDRATE
     Indication: Somatic dysfunction
  11. ESOMEPRAZOLE SODIUM [Suspect]
     Active Substance: ESOMEPRAZOLE SODIUM
     Indication: Somatic symptom disorder
     Dosage: UNK
     Route: 065
  12. FLUTICASONE [Suspect]
     Active Substance: FLUTICASONE
     Indication: Somatic dysfunction
     Dosage: UNK
     Route: 065
  13. FLUTICASONE [Suspect]
     Active Substance: FLUTICASONE
     Indication: Somatic symptom disorder
  14. HYDROCHLOROTHIAZIDE [Suspect]
     Active Substance: HYDROCHLOROTHIAZIDE
     Indication: Somatic symptom disorder
     Dosage: UNK
     Route: 005
  15. LAMOTRIGINE [Suspect]
     Active Substance: LAMOTRIGINE
     Indication: Anxiety
     Dosage: GRADUALLY INCREASED DOSES UP TO 200 MG DAILY
     Route: 065
  16. LAMOTRIGINE [Suspect]
     Active Substance: LAMOTRIGINE
     Indication: Affective disorder
  17. LAMOTRIGINE [Suspect]
     Active Substance: LAMOTRIGINE
     Indication: Bipolar disorder
  18. MIDAZOLAM [Suspect]
     Active Substance: MIDAZOLAM
     Indication: Bipolar II disorder
     Dosage: UNK
     Route: 065
  19. MIDAZOLAM [Suspect]
     Active Substance: MIDAZOLAM
     Indication: Anxiety
  20. MIDAZOLAM [Suspect]
     Active Substance: MIDAZOLAM
     Indication: Sleep disorder
  21. MONTELUKAST SODIUM [Suspect]
     Active Substance: MONTELUKAST SODIUM
     Indication: Somatic symptom disorder
     Dosage: UNK
     Route: 065
  22. NEBIVOLOL [Suspect]
     Active Substance: NEBIVOLOL
     Indication: Somatic symptom disorder
     Dosage: UNK
     Route: 065
  23. OLANZAPINE [Suspect]
     Active Substance: OLANZAPINE
     Indication: Anxiety
     Dosage: UNK
     Route: 065
  24. OLANZAPINE [Suspect]
     Active Substance: OLANZAPINE
     Indication: Bipolar II disorder
  25. OLANZAPINE [Suspect]
     Active Substance: OLANZAPINE
     Indication: Fear
  26. PAROXETINE HYDROCHLORIDE [Suspect]
     Active Substance: PAROXETINE HYDROCHLORIDE\PAROXETINE HYDROCHLORIDE ANHYDROUS
     Indication: Bipolar II disorder
     Dosage: UP 40 MG PER DAY
     Route: 065
  27. PAROXETINE HYDROCHLORIDE [Suspect]
     Active Substance: PAROXETINE HYDROCHLORIDE\PAROXETINE HYDROCHLORIDE ANHYDROUS
     Indication: Affective disorder
  28. PAROXETINE HYDROCHLORIDE [Suspect]
     Active Substance: PAROXETINE HYDROCHLORIDE\PAROXETINE HYDROCHLORIDE ANHYDROUS
     Indication: Anxiety
  29. QUETIAPINE [Suspect]
     Active Substance: QUETIAPINE
     Indication: Bipolar II disorder
     Dosage: 200 MG, QD
     Route: 065
  30. QUETIAPINE [Suspect]
     Active Substance: QUETIAPINE
     Indication: Affective disorder
  31. QUETIAPINE [Suspect]
     Active Substance: QUETIAPINE
     Indication: Anxiety
  32. SALMETEROL [Suspect]
     Active Substance: SALMETEROL
     Indication: Somatic symptom disorder
     Dosage: UNK
     Route: 065
  33. VALSARTAN [Suspect]
     Active Substance: VALSARTAN
     Indication: Somatic dysfunction
     Route: 065
  34. VENLAFAXINE [Suspect]
     Active Substance: VENLAFAXINE HYDROCHLORIDE
     Indication: Anxiety
     Dosage: 300 MG, QD (UP TO 300 MG/DAY, DOSES WERE GRADUALLY REDUCED UNTIL 300MG, QD)
     Route: 065
  35. VENLAFAXINE [Suspect]
     Active Substance: VENLAFAXINE HYDROCHLORIDE
     Indication: Affective disorder
  36. VENLAFAXINE [Suspect]
     Active Substance: VENLAFAXINE HYDROCHLORIDE
     Indication: Bipolar disorder
  37. ZOLPIDEM [Suspect]
     Active Substance: ZOLPIDEM TARTRATE
     Indication: Sleep disorder
     Dosage: UNK
     Route: 065
  38. ZOLPIDEM [Suspect]
     Active Substance: ZOLPIDEM TARTRATE
     Indication: Anxiety
  39. ZOLPIDEM [Suspect]
     Active Substance: ZOLPIDEM TARTRATE
     Indication: Bipolar II disorder
  40. ZOLPIDEM [Suspect]
     Active Substance: ZOLPIDEM TARTRATE
     Indication: Insomnia
  41. BUPROPION [Concomitant]
     Active Substance: BUPROPION
     Indication: Product used for unknown indication
     Dosage: UP 300 MG PER DAY
     Route: 065
  42. BUPROPION [Concomitant]
     Active Substance: BUPROPION
     Indication: Product used for unknown indication

REACTIONS (9)
  - Drug-induced liver injury [Recovered/Resolved]
  - Hepatic enzyme increased [Recovering/Resolving]
  - Anxiety [Recovering/Resolving]
  - Depression [Recovering/Resolving]
  - Insomnia [Recovering/Resolving]
  - Therapeutic product effect incomplete [Unknown]
  - Drug ineffective [Unknown]
  - Off label use [Unknown]
  - Product used for unknown indication [Unknown]
